FAERS Safety Report 6162038-6 (Version None)
Quarter: 2009Q2

REPORT INFORMATION
  Report Type: 
  Country: None (occurrence: None)
  Receive Date: 20090417
  Receipt Date: 20090417
  Transmission Date: 20091009
  Serious: No
  Sender: FDA-Public Use
  Company Number: None

PATIENT
  Sex: Female
  Weight: 70.45 kg

DRUGS (14)
  1. AMLODIPINE [Suspect]
     Dosage: 5 MG QD ORAL
     Route: 048
     Dates: start: 20090331, end: 20090416
  2. ALBUTEROL [Concomitant]
  3. AMBIEN [Concomitant]
  4. AMMONIUM LACTATE [Concomitant]
  5. APAP (ACETAMINOPHEN) [Concomitant]
  6. CLONAZEPAM [Concomitant]
  7. ESKALITH CR (LITHIUM CARBONATE CONTROLLED RELEASE) [Concomitant]
  8. FLEXERIL [Concomitant]
  9. IBUPROFEN [Concomitant]
  10. LEVOFLOXACIN [Concomitant]
  11. LORAZEPAM [Concomitant]
  12. NICOTINE LOZENGE [Concomitant]
  13. RANITIDINE HCL [Concomitant]
  14. RISPERIDONE [Concomitant]

REACTIONS (1)
  - CONSTIPATION [None]
